FAERS Safety Report 13070122 (Version 3)
Quarter: 2017Q1

REPORT INFORMATION
  Report Type: Report from Study
  Country: RO (occurrence: RO)
  Receive Date: 20161228
  Receipt Date: 20170214
  Transmission Date: 20170428
  Serious: No
  Sender: FDA-Public Use
  Company Number: RO-ALEXION PHARMACEUTICALS INC.-A201610267

PATIENT
  Sex: Male
  Weight: 20 kg

DRUGS (1)
  1. ASFOTASE ALFA [Suspect]
     Active Substance: ASFOTASE ALFA
     Indication: HYPOPHOSPHATASIA
     Dosage: 0.92 ML, EVERY TWO DAYS
     Route: 058
     Dates: start: 20131113

REACTIONS (1)
  - Injection site erythema [Unknown]
